FAERS Safety Report 20809753 (Version 1)
Quarter: 2022Q2

REPORT INFORMATION
  Report Type: Report from Study
  Country: US (occurrence: US)
  Receive Date: 20220510
  Receipt Date: 20220510
  Transmission Date: 20220721
  Serious: Yes (Other)
  Sender: FDA-Public Use
  Company Number: US-TAKEDA-US202033412

PATIENT
  Sex: Female

DRUGS (1)
  1. HUMAN IMMUNOGLOBULIN G [Suspect]
     Active Substance: HUMAN IMMUNOGLOBULIN G
     Indication: Hypogammaglobulinaemia
     Dosage: UNK
     Route: 065

REACTIONS (12)
  - Pancreatic atrophy [Unknown]
  - Neuralgia [Unknown]
  - Intervertebral disc protrusion [Unknown]
  - Blood immunoglobulin G decreased [Unknown]
  - Arthralgia [Not Recovered/Not Resolved]
  - Headache [Unknown]
  - Gastrointestinal disorder [Unknown]
  - Diarrhoea [Unknown]
  - Food allergy [Unknown]
  - Liver function test increased [Unknown]
  - Inappropriate schedule of product administration [Unknown]
  - Insurance issue [Unknown]
